FAERS Safety Report 19008773 (Version 1)
Quarter: 2021Q1

REPORT INFORMATION
  Report Type: Spontaneous
  Country: US (occurrence: US)
  Receive Date: 20210315
  Receipt Date: 20210315
  Transmission Date: 20210420
  Serious: Yes (Life-Threatening, Hospitalization, Other)
  Sender: FDA-Public Use
  Company Number: US-APOTEX-2021AP005850

PATIENT
  Age: 17 Year
  Sex: Male

DRUGS (2)
  1. TOPIRAMATE. [Concomitant]
     Active Substance: TOPIRAMATE
     Indication: PRODUCT USED FOR UNKNOWN INDICATION
     Dosage: UNK (TOOK 12 H PRIOR)
     Route: 065
  2. GUANFACINE EXTENDED RELEASE TABLET [Suspect]
     Active Substance: GUANFACINE
     Indication: PRODUCT USED FOR UNKNOWN INDICATION
     Dosage: 80 MILLIGRAM (WHICH WAS 40 TIMES HIS PRESCRIBED DOSE)
     Route: 048

REACTIONS (9)
  - Pulmonary oedema [Recovering/Resolving]
  - Bundle branch block right [Recovering/Resolving]
  - Accidental overdose [Recovering/Resolving]
  - Nodal rhythm [Recovering/Resolving]
  - Toxicity to various agents [Recovering/Resolving]
  - Sinus bradycardia [Recovering/Resolving]
  - Somnolence [Unknown]
  - Cardiac failure [Recovering/Resolving]
  - Accidental exposure to product [Recovering/Resolving]
